FAERS Safety Report 20393264 (Version 2)
Quarter: 2022Q1

REPORT INFORMATION
  Report Type: Report from Study
  Country: US (occurrence: US)
  Receive Date: 20220128
  Receipt Date: 20220208
  Transmission Date: 20220423
  Serious: Yes (Hospitalization, Other)
  Sender: FDA-Public Use
  Company Number: US-BRISTOL-MYERS SQUIBB COMPANY-BMS-2022-000979

PATIENT
  Age: 43 Year
  Sex: Male
  Weight: 118.6 kg

DRUGS (3)
  1. NIVOLUMAB [Suspect]
     Active Substance: NIVOLUMAB
     Indication: Hodgkin^s disease
     Dosage: 240 MILLIGRAM, Q2WK
     Route: 042
     Dates: start: 20211101, end: 20211227
  2. LENALIDOMIDE [Suspect]
     Active Substance: LENALIDOMIDE
     Indication: Hodgkin^s disease
     Dosage: 10 MILLIGRAM, QD (DAYS 1-21)
     Route: 048
     Dates: start: 20211101, end: 20220102
  3. SULFAMETHOXAZOLE\TRIMETHOPRIM [Suspect]
     Active Substance: SULFAMETHOXAZOLE\TRIMETHOPRIM
     Indication: Bronchitis bacterial
     Dosage: UNK
     Route: 065
     Dates: start: 20211220, end: 20220103

REACTIONS (1)
  - Stevens-Johnson syndrome [Recovering/Resolving]

NARRATIVE: CASE EVENT DATE: 20220103
